FAERS Safety Report 8904057 (Version 1)
Quarter: 2012Q4

REPORT INFORMATION
  Report Type: 
  Country: US (occurrence: US)
  Receive Date: 20121112
  Receipt Date: 20121112
  Transmission Date: 20130627
  Serious: Yes (Other)
  Sender: FDA-Public Use
  Company Number: US-BRISTOL-MYERS SQUIBB COMPANY-17087792

PATIENT
  Age: 55 Year
  Sex: Female
  Weight: 113 kg

DRUGS (2)
  1. AVAPRO [Suspect]
     Indication: HYPERTENSION
     Dosage: Unk date: Increased to 300 mg
  2. ENALAPRIL [Concomitant]

REACTIONS (5)
  - Mass [Unknown]
  - Oedema [Unknown]
  - Weight increased [Unknown]
  - Increased appetite [Unknown]
  - Drug ineffective [Unknown]
